FAERS Safety Report 24441668 (Version 2)
Quarter: 2024Q4

REPORT INFORMATION
  Report Type: Report from Study
  Country: US (occurrence: US)
  Receive Date: 20241016
  Receipt Date: 20241017
  Transmission Date: 20250115
  Serious: No
  Sender: ROCHE
  Company Number: US-ROCHE-3508240

PATIENT
  Age: 34 Year
  Sex: Male

DRUGS (2)
  1. HEMLIBRA [Suspect]
     Active Substance: EMICIZUMAB-KXWH
     Indication: Haemophilia
     Dosage: INJECT 3.2ML (480MG), 3ML FROM 150MG VIALS AND 1ML FROM 30MG VIAL
     Route: 058
  2. HEMLIBRA [Suspect]
     Active Substance: EMICIZUMAB-KXWH
     Dosage: 3ML FROM 150MG VIALS AND 1ML FROM 30MG VIAL
     Route: 058

REACTIONS (2)
  - Product administration error [Unknown]
  - No adverse event [Unknown]
